FAERS Safety Report 19811408 (Version 2)
Quarter: 2021Q4

REPORT INFORMATION
  Report Type: Spontaneous
  Country: PT (occurrence: PT)
  Receive Date: 20210909
  Receipt Date: 20211115
  Transmission Date: 20220303
  Serious: Yes (Other)
  Sender: FDA-Public Use
  Company Number: None

PATIENT
  Age: 29 Year
  Sex: Female
  Weight: 51 kg

DRUGS (2)
  1. ZOLOFT [Interacting]
     Active Substance: SERTRALINE HYDROCHLORIDE
     Indication: Anxiety disorder
     Dosage: 1 DF, 1X/DAY(1 TABLET IN THE MORNING)
     Route: 048
     Dates: start: 20210707
  2. MEXAZOLAM [Interacting]
     Active Substance: MEXAZOLAM
     Indication: Anxiety disorder
     Dosage: 1 DF, DAILY (HALF LUNCH, HALF AT DINNER)
     Route: 048
     Dates: start: 20210803

REACTIONS (3)
  - Visual impairment [Unknown]
  - Eye pain [Unknown]
  - Drug interaction [Not Recovered/Not Resolved]

NARRATIVE: CASE EVENT DATE: 20210810
